FAERS Safety Report 5882367-0 (Version None)
Quarter: 2008Q3

REPORT INFORMATION
  Report Type: 
  Country: None (occurrence: None)
  Receive Date: 20080913
  Receipt Date: 20080804
  Transmission Date: 20090109
  Serious: No
  Sender: FDA-Public Use
  Company Number: US-ABBOTT-08P-163-0468382-00

PATIENT
  Sex: Male
  Weight: 76.726 kg

DRUGS (6)
  1. HUMIRA [Suspect]
     Indication: RHEUMATOID ARTHRITIS
     Route: 058
     Dates: start: 20080401
  2. LEFLUNOMIDE [Concomitant]
     Indication: RHEUMATOID ARTHRITIS
     Dates: end: 20080601
  3. SULFASALAZINE [Concomitant]
     Indication: RHEUMATOID ARTHRITIS
     Dates: end: 20080601
  4. SULFASALAZINE [Concomitant]
     Dates: start: 20080701
  5. CANNABIS SATIVA [Concomitant]
     Indication: PAIN MANAGEMENT
     Route: 055
  6. AUROTHIOGLUCOSE [Concomitant]
     Indication: RHEUMATOID ARTHRITIS
     Route: 050

REACTIONS (5)
  - GAIT DISTURBANCE [None]
  - NODULE ON EXTREMITY [None]
  - PAIN IN EXTREMITY [None]
  - RHEUMATOID ARTHRITIS [None]
  - WEIGHT DECREASED [None]
